FAERS Safety Report 16130694 (Version 1)
Quarter: 2019Q1

REPORT INFORMATION
  Report Type: Spontaneous
  Country: US (occurrence: US)
  Receive Date: 20190328
  Receipt Date: 20190328
  Transmission Date: 20190418
  Serious: No
  Sender: FDA-Public Use
  Company Number: US-TEVA-2019-US-1019910

PATIENT
  Sex: Female
  Weight: 50 kg

DRUGS (9)
  1. IPRATROPIUM BROMIDE NASAL SOLUTION [Concomitant]
     Active Substance: IPRATROPIUM BROMIDE
     Route: 045
  2. QVAR REDIHALER [Suspect]
     Active Substance: BECLOMETHASONE DIPROPIONATE
     Indication: ASTHMA
     Route: 065
  3. ALLEGRA [Concomitant]
     Active Substance: FEXOFENADINE HYDROCHLORIDE
  4. ALLEGRA-D [Concomitant]
     Active Substance: FEXOFENADINE\PSEUDOEPHEDRINE
  5. LOMOTIL [Concomitant]
     Active Substance: ATROPINE SULFATE\DIPHENOXYLATE HYDROCHLORIDE
  6. ZENPEP [Concomitant]
     Active Substance: PANCRELIPASE AMYLASE\PANCRELIPASE LIPASE\PANCRELIPASE PROTEASE
  7. OLOPATADINE. [Concomitant]
     Active Substance: OLOPATADINE
     Route: 045
  8. ZOLOFT [Concomitant]
     Active Substance: SERTRALINE HYDROCHLORIDE
  9. PREVALITE [Concomitant]
     Active Substance: CHOLESTYRAMINE

REACTIONS (2)
  - Device issue [Unknown]
  - Drug effect incomplete [Unknown]
